FAERS Safety Report 15420217 (Version 1)
Quarter: 2018Q3

REPORT INFORMATION
  Report Type: Spontaneous
  Country: US (occurrence: US)
  Receive Date: 20180924
  Receipt Date: 20180924
  Transmission Date: 20181010
  Serious: Yes (Disabling, Other)
  Sender: FDA-Public Use
  Company Number: US-BAYER-2018-175030

PATIENT
  Sex: Female

DRUGS (1)
  1. COPPERTONE ULTRAGUARD SPF 15 [Suspect]
     Active Substance: AVOBENZONE\HOMOSALATE\OCTISALATE\OXYBENZONE

REACTIONS (15)
  - Injury [Not Recovered/Not Resolved]
  - Neck injury [None]
  - Musculoskeletal pain [None]
  - Product physical issue [None]
  - Malaise [None]
  - Traumatic shock [None]
  - Stress [None]
  - Pain [None]
  - Traumatic intracranial haemorrhage [None]
  - Contusion [None]
  - Limb injury [None]
  - Neck pain [None]
  - Scar [None]
  - Back pain [None]
  - Head injury [None]

NARRATIVE: CASE EVENT DATE: 20180601
